FAERS Safety Report 15559665 (Version 1)
Quarter: 2018Q4

REPORT INFORMATION
  Report Type: Spontaneous
  Country: US (occurrence: US)
  Receive Date: 20181022
  Receipt Date: 20181022
  Transmission Date: 20190205
  Serious: Yes (Other)
  Sender: FDA-Public Use
  Company Number: None

PATIENT
  Age: 71 Year
  Sex: Female
  Weight: 83.2 kg

DRUGS (2)
  1. ASA EC 325MG (ASPIRIN) [Suspect]
     Active Substance: ASPIRIN
     Indication: THROMBOSIS PROPHYLAXIS
     Route: 048
     Dates: start: 20181012, end: 20181017
  2. CIPROFLOXACIN 250MG [Suspect]
     Active Substance: CIPROFLOXACIN
     Indication: URINARY TRACT INFECTION
     Route: 048
     Dates: start: 20181011, end: 20181017

REACTIONS (3)
  - Dyspnoea [None]
  - Oral pain [None]
  - Lip swelling [None]

NARRATIVE: CASE EVENT DATE: 20181017
